FAERS Safety Report 20667118 (Version 1)
Quarter: 2022Q2

REPORT INFORMATION
  Report Type: Spontaneous
  Country: ES (occurrence: ES)
  Receive Date: 20220404
  Receipt Date: 20220404
  Transmission Date: 20220721
  Serious: Yes (Hospitalization, Other)
  Sender: FDA-Public Use
  Company Number: ES-AEMPS-1144545

PATIENT
  Age: 72 Year
  Sex: Male

DRUGS (6)
  1. AMOXICILLIN\CLAVULANIC ACID [Interacting]
     Active Substance: AMOXICILLIN\CLAVULANIC ACID
     Indication: Pneumonia aspiration
     Dosage: 1 GRAM, 3 TIMES A DAY
     Route: 042
     Dates: start: 20211201, end: 20211205
  2. FUROSEMIDE [Interacting]
     Active Substance: FUROSEMIDE
     Indication: Cardiac failure
     Dosage: 20 MILLIGRAM, ONCE A DAY
     Route: 042
     Dates: start: 20211202, end: 20211216
  3. AMPICILLIN [Interacting]
     Active Substance: AMPICILLIN
     Indication: Pneumonia aspiration
     Dosage: 500 MILLIGRAM, ONCE A DAY
     Route: 042
     Dates: start: 20211209, end: 20211213
  4. CEFTRIAXONE [Interacting]
     Active Substance: CEFTRIAXONE
     Indication: Pneumonia aspiration
     Dosage: 1 GRAM, ONCE A DAY
     Route: 042
     Dates: start: 20211205, end: 20211209
  5. ENALAPRIL [Interacting]
     Active Substance: ENALAPRIL
     Indication: Hypertension
     Dosage: 0.5 MILLIGRAM, ONCE A DAY
     Route: 048
     Dates: start: 20211128, end: 20211219
  6. GENTAMICIN [Interacting]
     Active Substance: GENTAMICIN
     Indication: Pneumonia aspiration
     Dosage: 240 MILLIGRAM, ONCE A DAY
     Route: 042
     Dates: start: 20211209, end: 20211213

REACTIONS (2)
  - Tubulointerstitial nephritis [Not Recovered/Not Resolved]
  - Acute kidney injury [Not Recovered/Not Resolved]

NARRATIVE: CASE EVENT DATE: 20211213
